FAERS Safety Report 7782306-1 (Version None)
Quarter: 2011Q3

REPORT INFORMATION
  Report Type: 
  Country: None (occurrence: None)
  Receive Date: 20110927
  Receipt Date: 20110914
  Transmission Date: 20111222
  Serious: Yes (Hospitalization)
  Sender: FDA-Public Use
  Company Number: US-ELI_LILLY_AND_COMPANY-US201109005768

PATIENT
  Age: 8 Year
  Sex: Male

DRUGS (3)
  1. TRAZODONE HYDROCHLORIDE [Concomitant]
     Dosage: UNK
     Dates: end: 20110912
  2. VITAMIN TAB [Concomitant]
     Dosage: UNK
     Dates: end: 20110912
  3. ZYPREXA [Suspect]
     Indication: ATTENTION DEFICIT/HYPERACTIVITY DISORDER
     Dosage: 7.5 MG, QD
     Dates: end: 20110912

REACTIONS (9)
  - ANGER [None]
  - MUSCLE SPASMS [None]
  - HEAD DISCOMFORT [None]
  - AGGRESSION [None]
  - VISUAL ACUITY REDUCED [None]
  - ADVERSE DRUG REACTION [None]
  - VISION BLURRED [None]
  - AGITATION [None]
  - OFF LABEL USE [None]
